FAERS Safety Report 11039104 (Version 3)
Quarter: 2015Q3

REPORT INFORMATION
  Report Type: Spontaneous
  Country: US (occurrence: US)
  Receive Date: 20150416
  Receipt Date: 20150824
  Transmission Date: 20151125
  Serious: Yes (Death, Hospitalization, Other)
  Sender: FDA-Public Use
  Company Number: US-MERCK-1504USA015495

PATIENT
  Sex: Male
  Weight: 98.87 kg

DRUGS (2)
  1. JANUVIA [Suspect]
     Active Substance: SITAGLIPTIN PHOSPHATE
     Indication: TYPE 1 DIABETES MELLITUS
     Dosage: 100 MG, QD
     Route: 048
     Dates: start: 201301, end: 201306
  2. SITAGLIPTIN [Suspect]
     Active Substance: SITAGLIPTIN
     Dosage: 100 MG, QD
     Dates: start: 20130406

REACTIONS (24)
  - Cerebrovascular accident [Unknown]
  - Hyperglycaemia [Unknown]
  - Orthostatic hypotension [Recovered/Resolved]
  - Chronic hepatitis [Not Recovered/Not Resolved]
  - Lung cancer metastatic [Unknown]
  - Prostate cancer metastatic [Unknown]
  - Urinary retention [Recovered/Resolved]
  - Liver function test abnormal [Unknown]
  - Pancreatic carcinoma [Fatal]
  - Cholelithiasis [Unknown]
  - Constipation [Recovered/Resolved]
  - Fatigue [Unknown]
  - Failure to thrive [Unknown]
  - Asthenia [Unknown]
  - Normal pressure hydrocephalus [Unknown]
  - Insomnia [Unknown]
  - Diabetes mellitus inadequate control [Unknown]
  - Lung neoplasm surgery [Unknown]
  - Delirium [Unknown]
  - Pancytopenia [Unknown]
  - Chest pain [Recovering/Resolving]
  - Spinal cord operation [Unknown]
  - Product use issue [Unknown]
  - Urinary incontinence [Unknown]

NARRATIVE: CASE EVENT DATE: 2013
